FAERS Safety Report 4465349-5 (Version None)
Quarter: 2004Q3

REPORT INFORMATION
  Report Type: 
  Country: None (occurrence: None)
  Receive Date: 20040929
  Receipt Date: 20040914
  Transmission Date: 20050211
  Serious: Yes (Hospitalization, Other)
  Sender: FDA-Public Use
  Company Number: USA040155762

PATIENT
  Age: 77 Year
  Sex: Female

DRUGS (5)
  1. FORTEO [Suspect]
     Indication: OSTEOPOROSIS
     Dosage: 20 UG DAY
     Dates: start: 20030601, end: 20031226
  2. SYNTHROID [Concomitant]
  3. CRESTOR [Concomitant]
  4. PROTONIX [Concomitant]
  5. LIPITOR [Concomitant]

REACTIONS (58)
  - ABDOMINAL TENDERNESS [None]
  - ANAEMIA [None]
  - ANAEMIA OF CHRONIC DISEASE [None]
  - ANTIBODY TEST POSITIVE [None]
  - ARTHRALGIA [None]
  - ASTHENIA [None]
  - AUTOIMMUNE DISORDER [None]
  - BLOOD CALCIUM INCREASED [None]
  - BREATH SOUNDS DECREASED [None]
  - C-REACTIVE PROTEIN INCREASED [None]
  - CANDIDIASIS [None]
  - CARDIAC FLUTTER [None]
  - CHEST PAIN [None]
  - CHILLS [None]
  - CHRONIC OBSTRUCTIVE AIRWAYS DISEASE [None]
  - CHRONIC SINUSITIS [None]
  - DECREASED APPETITE [None]
  - DEHYDRATION [None]
  - DIARRHOEA [None]
  - DIFFICULTY IN WALKING [None]
  - DIZZINESS [None]
  - DYSPNOEA [None]
  - EXTRASYSTOLES [None]
  - FLANK PAIN [None]
  - HEART RATE INCREASED [None]
  - HEART RATE IRREGULAR [None]
  - HEPATIC CYST [None]
  - IMPAIRED WORK ABILITY [None]
  - INJECTION SITE BURNING [None]
  - KIDNEY INFECTION [None]
  - LOSS OF EMPLOYMENT [None]
  - LUNG NEOPLASM [None]
  - MIDDLE INSOMNIA [None]
  - MUSCLE CRAMP [None]
  - MUSCULAR WEAKNESS [None]
  - NAUSEA [None]
  - PAIN [None]
  - PALPITATIONS [None]
  - PERICARDIAL EFFUSION [None]
  - PERICARDIAL FIBROSIS [None]
  - PERICARDITIS [None]
  - PLEURISY [None]
  - POLLAKIURIA [None]
  - PROTEIN TOTAL INCREASED [None]
  - PULMONARY CALCIFICATION [None]
  - PYELONEPHRITIS [None]
  - PYREXIA [None]
  - RASH ERYTHEMATOUS [None]
  - RASH GENERALISED [None]
  - RASH MACULAR [None]
  - RENAL FAILURE ACUTE [None]
  - RHINORRHOEA [None]
  - SINUS DISORDER [None]
  - SYSTEMIC LUPUS ERYTHEMATOSUS [None]
  - URINE ANALYSIS ABNORMAL [None]
  - VOMITING [None]
  - WEIGHT DECREASED [None]
  - WHEEZING [None]
